FAERS Safety Report 7528219-1 (Version None)
Quarter: 2011Q2

REPORT INFORMATION
  Report Type: 
  Country: None (occurrence: None)
  Receive Date: 20110531
  Receipt Date: 20110524
  Transmission Date: 20111010
  Serious: Yes (Death, Hospitalization)
  Sender: FDA-Public Use
  Company Number: SP03553

PATIENT
  Age: 55 Year
  Sex: Male
  Weight: 88.4514 kg

DRUGS (5)
  1. MOVIPREP [Suspect]
     Indication: BOWEL PREPARATION
     Dosage: ORAL
     Route: 048
     Dates: start: 20110308, end: 20110308
  2. ASPIRIN [Concomitant]
  3. HYZAAR [Concomitant]
  4. CLARITIN [Concomitant]
  5. POTASSIUM CHLORIDE [Concomitant]

REACTIONS (9)
  - AGGRESSION [None]
  - WHITE BLOOD CELL COUNT INCREASED [None]
  - MEAN PLATELET VOLUME DECREASED [None]
  - HYPONATRAEMIA [None]
  - HYPOKALAEMIA [None]
  - CONVULSION [None]
  - COMA SCALE ABNORMAL [None]
  - MENTAL STATUS CHANGES [None]
  - CEREBRAL HAEMORRHAGE [None]
